FAERS Safety Report 4885869-9 (Version None)
Quarter: 2006Q1

REPORT INFORMATION
  Report Type: 
  Country: None (occurrence: None)
  Receive Date: 20060117
  Receipt Date: 20060104
  Transmission Date: 20060701
  Serious: Yes (Congenital Anomaly, Other)
  Sender: FDA-Public Use
  Company Number: 2006AL000046

PATIENT
  Age: 7 Year
  Sex: Male

DRUGS (2)
  1. CARBAMAZEPINE [Suspect]
     Indication: EPILEPSY
     Dosage: 1.2 GM;QD
  2. VIGATRABIN [Concomitant]

REACTIONS (5)
  - CYCLOPLEGIC REFRACTION [None]
  - DRUG EXPOSURE DURING PREGNANCY [None]
  - EXTERNAL EAR DISORDER [None]
  - RETROGNATHIA [None]
  - TOOTH DISORDER [None]
